FAERS Safety Report 7314128-X (Version None)
Quarter: 2011Q1

REPORT INFORMATION
  Report Type: 
  Country: None (occurrence: None)
  Receive Date: 20110225
  Receipt Date: 20100513
  Transmission Date: 20110831
  Serious: No
  Sender: FDA-Public Use
  Company Number: US-MYLANLABS-2010S1008470

PATIENT
  Age: 17 Year
  Sex: Female

DRUGS (4)
  1. AMNESTEEM [Suspect]
     Indication: ACNE
     Route: 048
     Dates: end: 20100401
  2. CLARAVIS [Suspect]
     Route: 048
  3. CLARAVIS [Suspect]
     Indication: ACNE
     Route: 048
     Dates: start: 20090901
  4. AMNESTEEM [Suspect]
     Route: 048
     Dates: end: 20100401

REACTIONS (2)
  - FATIGUE [None]
  - FEELING ABNORMAL [None]
